FAERS Safety Report 5472156-3 (Version None)
Quarter: 2007Q3

REPORT INFORMATION
  Report Type: 
  Country: None (occurrence: None)
  Receive Date: 20070925
  Receipt Date: 20070912
  Transmission Date: 20080115
  Serious: Yes (Other)
  Sender: FDA-Public Use
  Company Number: 2007NI0115

PATIENT
  Sex: Male

DRUGS (15)
  1. NITROLINGUAL PUMPSPRAY [Suspect]
     Indication: ANGINA PECTORIS
     Dosage: PRN, SUBLINGUAL (16-17 YEARS)
     Route: 060
  2. ACTOS [Concomitant]
  3. ANTIVERT [Concomitant]
  4. ASPIRIN [Concomitant]
  5. LASIX [Concomitant]
  6. ISOSORBIDE DINITRATE [Concomitant]
  7. LIPITOR [Concomitant]
  8. NIASPAN [Concomitant]
  9. PROMETHAZINE [Concomitant]
  10. PLAVIX [Concomitant]
  11. SYNTHROID [Concomitant]
  12. TOPROL-XL [Concomitant]
  13. TYLENOL ES PRN [Concomitant]
  14. ASCORBIC ACID [Concomitant]
  15. ZINC [Concomitant]

REACTIONS (8)
  - ACCIDENTAL EXPOSURE [None]
  - CEREBROVASCULAR ACCIDENT [None]
  - DEVICE BREAKAGE [None]
  - EXPIRED DRUG ADMINISTERED [None]
  - EYE IRRITATION [None]
  - FOREIGN BODY TRAUMA [None]
  - INCORRECT ROUTE OF DRUG ADMINISTRATION [None]
  - TRANSIENT ISCHAEMIC ATTACK [None]
